FAERS Safety Report 5024777-X (Version None)
Quarter: 2006Q2

REPORT INFORMATION
  Report Type: 
  Country: None (occurrence: None)
  Receive Date: 20060426
  Receipt Date: 20060214
  Transmission Date: 20061013
  Serious: Yes (Other)
  Sender: FDA-Public Use
  Company Number: 2006022757

PATIENT
  Age: 37 Year
  Sex: Female
  Weight: 54.4316 kg

DRUGS (1)
  1. LYRICA [Suspect]
     Indication: ORAL PAIN
     Dosage: 100 MG (50 MG, 2 IN 1 D)
     Dates: start: 20060208, end: 20060214

REACTIONS (4)
  - DRUG INEFFECTIVE [None]
  - HEART RATE INCREASED [None]
  - MENTAL IMPAIRMENT [None]
  - PALPITATIONS [None]
